FAERS Safety Report 12336719 (Version 1)
Quarter: 2016Q2

REPORT INFORMATION
  Report Type: Spontaneous
  Country: GB (occurrence: GB)
  Receive Date: 20160505
  Receipt Date: 20160505
  Transmission Date: 20160815
  Serious: Yes (Hospitalization)
  Sender: FDA-Public Use
  Company Number: GB-TEVA-634587ACC

PATIENT
  Age: 84 Year
  Sex: Female

DRUGS (7)
  1. LANSOPRAZOLE. [Concomitant]
     Active Substance: LANSOPRAZOLE
  2. BISOPROLOL [Suspect]
     Active Substance: BISOPROLOL
     Indication: ATRIAL FIBRILLATION
     Dosage: 2.5 MILLIGRAM DAILY; EVERY MORNING.
     Route: 048
     Dates: end: 20160121
  3. BETAHISTINE [Concomitant]
     Active Substance: BETAHISTINE
  4. ATORVASTATIN [Concomitant]
     Active Substance: ATORVASTATIN
  5. SERTRALINE [Concomitant]
     Active Substance: SERTRALINE HYDROCHLORIDE
  6. DIGOXIN. [Suspect]
     Active Substance: DIGOXIN
     Indication: ATRIAL FIBRILLATION
     Dosage: 62.5 MICROGRAM DAILY; EVERY MORNING.
     Route: 048
     Dates: end: 20160121
  7. PARACETAMOL [Concomitant]
     Active Substance: ACETAMINOPHEN

REACTIONS (3)
  - Dizziness [Unknown]
  - Loss of consciousness [Unknown]
  - Bradycardia [Recovered/Resolved]

NARRATIVE: CASE EVENT DATE: 20160119
